FAERS Safety Report 7020543-4 (Version None)
Quarter: 2010Q3

REPORT INFORMATION
  Report Type: 
  Country: None (occurrence: None)
  Receive Date: 20100929
  Receipt Date: 20100920
  Transmission Date: 20110219
  Serious: Yes (Hospitalization, Other)
  Sender: FDA-Public Use
  Company Number: US-KINGPHARMUSA00001-K201001171

PATIENT
  Sex: Male
  Weight: 103.86 kg

DRUGS (29)
  1. ALTACE [Suspect]
     Indication: BLOOD PRESSURE MANAGEMENT
     Dosage: 2.5 MG, QD
     Route: 048
     Dates: start: 20071121, end: 20080201
  2. HEPARIN SODIUM [Suspect]
     Indication: ACUTE MYOCARDIAL INFARCTION
     Dosage: 1.5 ML, PRN
     Route: 033
     Dates: start: 20030101, end: 20070101
  3. HEPARIN SODIUM [Suspect]
     Indication: CATHETERISATION CARDIAC
     Dosage: 1.5 ML, PRN
     Route: 033
     Dates: start: 20070101, end: 20080201
  4. HEPARIN SODIUM [Suspect]
     Indication: THROMBOSIS PROPHYLAXIS
     Dosage: UNK ML, PRN
     Route: 033
     Dates: start: 20080201, end: 20080201
  5. HEPARIN SODIUM [Suspect]
     Indication: PERITONEAL DIALYSIS
     Dosage: 5000 U, SINGLE
     Route: 042
     Dates: start: 20071118, end: 20071118
  6. HEPARIN SODIUM [Suspect]
     Dosage: 1000 U, EVERY HR
     Route: 042
     Dates: start: 20071118, end: 20071101
  7. HEPARIN SODIUM [Suspect]
     Dosage: 7000 U, ONCE
     Route: 042
     Dates: start: 20071118, end: 20071118
  8. HEPARIN SODIUM [Suspect]
     Dosage: 5000 U, EVERY 8 HOURS
     Route: 058
     Dates: start: 20080202, end: 20080204
  9. TOPROL-XL [Suspect]
     Indication: BLOOD PRESSURE MANAGEMENT
     Dosage: 50 MG, QD
     Dates: start: 20071101, end: 20080201
  10. RENAGEL [Concomitant]
  11. CALCITRIOL [Concomitant]
  12. PHOSLO [Concomitant]
  13. LIPITOR [Concomitant]
  14. PROZAC [Concomitant]
  15. SENSIPAR [Concomitant]
  16. OMEPRAZOLE [Concomitant]
  17. EPOGEN [Concomitant]
  18. MORPHINE SULFATE [Concomitant]
  19. DELFLEX W/ DEXTROSE 1.5% [Concomitant]
  20. MOBIC [Concomitant]
  21. PLAVIX [Concomitant]
  22. RIFAMPIN [Concomitant]
  23. GABAPENTIN [Concomitant]
  24. ASPIRIN [Concomitant]
  25. LISINOPRIL [Concomitant]
  26. LEXAPRO [Concomitant]
  27. IRON [Concomitant]
  28. CEFTIN [Concomitant]
  29. TRICOR [Concomitant]

REACTIONS (11)
  - ABDOMINAL PAIN UPPER [None]
  - DIZZINESS [None]
  - DYSPEPSIA [None]
  - ELECTROLYTE IMBALANCE [None]
  - HYPOKALAEMIA [None]
  - HYPOTENSION [None]
  - LOSS OF CONSCIOUSNESS [None]
  - NAUSEA [None]
  - TREMOR [None]
  - UNRESPONSIVE TO STIMULI [None]
  - VOMITING [None]
